FAERS Safety Report 10369098 (Version 1)
Quarter: 2014Q3

REPORT INFORMATION
  Report Type: Spontaneous
  Country: ES (occurrence: ES)
  Receive Date: 20140807
  Receipt Date: 20140807
  Transmission Date: 20150326
  Serious: Yes (Other)
  Sender: FDA-Public Use
  Company Number: PHHY2014ES096261

PATIENT
  Age: 87 Year
  Sex: Male

DRUGS (5)
  1. FOSFOMYCIN [Suspect]
     Active Substance: FOSFOMYCIN
     Indication: STAPHYLOCOCCAL BACTERAEMIA
     Dosage: 2 G, Q6H
     Route: 042
  2. GENTAMICIN [Suspect]
     Active Substance: GENTAMICIN
     Indication: STAPHYLOCOCCAL BACTERAEMIA
  3. CUBICIN [Suspect]
     Active Substance: DAPTOMYCIN
     Indication: STAPHYLOCOCCAL BACTERAEMIA
  4. VANCOMYCIN [Suspect]
     Active Substance: VANCOMYCIN
     Indication: STAPHYLOCOCCAL BACTERAEMIA
  5. IMIPENEM [Suspect]
     Active Substance: IMIPENEM
     Indication: STAPHYLOCOCCAL BACTERAEMIA
     Dosage: 1 G, Q6H
     Route: 042

REACTIONS (2)
  - Systemic candida [Unknown]
  - Staphylococcal bacteraemia [Recovered/Resolved]
